FAERS Safety Report 22758200 (Version 2)
Quarter: 2023Q4

REPORT INFORMATION
  Report Type: Spontaneous
  Country: JP (occurrence: JP)
  Receive Date: 20230727
  Receipt Date: 20231109
  Transmission Date: 20240110
  Serious: Yes (Death)
  Sender: FDA-Public Use
  Company Number: JP-NShinyaku-EVA201901118ZZLILLY

PATIENT
  Age: 78 Year
  Sex: Male
  Weight: 63.8 kg

DRUGS (17)
  1. TADALAFIL [Suspect]
     Active Substance: TADALAFIL
     Indication: Pulmonary arterial hypertension
     Dosage: 40 MG, DAILY
     Route: 048
     Dates: end: 20210501
  2. UPTRAVI [Suspect]
     Active Substance: SELEXIPAG
     Indication: Pulmonary arterial hypertension
     Dosage: 0.2 MG, BID
     Route: 048
     Dates: start: 20180326, end: 20180328
  3. UPTRAVI [Suspect]
     Active Substance: SELEXIPAG
     Dosage: 0.2MG, 0.4MG, BID
     Route: 048
     Dates: start: 20180329, end: 20180404
  4. UPTRAVI [Suspect]
     Active Substance: SELEXIPAG
     Dosage: 0.4MG, 0.6MG, BID
     Route: 048
     Dates: start: 20180405, end: 20180411
  5. UPTRAVI [Suspect]
     Active Substance: SELEXIPAG
     Dosage: 0.4MG, 0.6MG, BID
     Route: 048
     Dates: start: 20180412, end: 20180426
  6. UPTRAVI [Suspect]
     Active Substance: SELEXIPAG
     Dosage: 0.8MG, 0.6MG, BID
     Route: 048
     Dates: start: 20180427, end: 20181004
  7. UPTRAVI [Suspect]
     Active Substance: SELEXIPAG
     Dosage: 1.2 MG, 0.8MG, BID
     Route: 048
     Dates: start: 20181005, end: 20181031
  8. UPTRAVI [Suspect]
     Active Substance: SELEXIPAG
     Dosage: 0.8 MG, BID
     Route: 048
     Dates: start: 20181101, end: 20190214
  9. UPTRAVI [Suspect]
     Active Substance: SELEXIPAG
     Dosage: 1.2 MG, 0.8MG, BID
     Route: 048
     Dates: start: 20190215, end: 20210501
  10. OPSUMIT [Concomitant]
     Active Substance: MACITENTAN
     Indication: Pulmonary arterial hypertension
     Dosage: 10 MG, DAILY
     Route: 048
     Dates: end: 20210501
  11. FUDOSTEINE [Concomitant]
     Active Substance: FUDOSTEINE
     Indication: Product used for unknown indication
     Dosage: 1200 MG, DAILY
     Route: 048
     Dates: end: 20210501
  12. FUROSEMIDE [Concomitant]
     Active Substance: FUROSEMIDE
     Indication: Product used for unknown indication
     Dosage: 10 MG, DAILY
     Route: 048
     Dates: end: 20210501
  13. POLAPREZINC [Concomitant]
     Active Substance: POLAPREZINC
     Indication: Product used for unknown indication
     Dosage: 75 MG, DAILY
     Route: 048
     Dates: end: 20210501
  14. AMLODIPINE [Concomitant]
     Active Substance: AMLODIPINE BESYLATE
     Indication: Hypertension
     Dosage: 5 MG, DAILY
     Route: 048
     Dates: end: 20210501
  15. SALAGEN [Concomitant]
     Active Substance: PILOCARPINE HYDROCHLORIDE
     Indication: Systemic scleroderma
     Dosage: 5 MG, DAILY
     Route: 048
     Dates: end: 20210501
  16. OFEV [Concomitant]
     Active Substance: NINTEDANIB
     Indication: Product used for unknown indication
     Dosage: 200 MG, DAILY
     Route: 048
     Dates: end: 20210501
  17. ALLELOCK [Concomitant]
     Active Substance: OLOPATADINE HYDROCHLORIDE
     Indication: Product used for unknown indication
     Dosage: 10 MG, DAILY
     Route: 048
     Dates: end: 20210501

REACTIONS (3)
  - Acute kidney injury [Fatal]
  - Dysphonia [Recovered/Resolved]
  - Diarrhoea [Recovered/Resolved]

NARRATIVE: CASE EVENT DATE: 20180801
